FAERS Safety Report 5615940-5 (Version None)
Quarter: 2008Q1

REPORT INFORMATION
  Report Type: 
  Country: None (occurrence: None)
  Receive Date: 20080206
  Receipt Date: 20080114
  Transmission Date: 20080703
  Serious: Yes (Death)
  Sender: FDA-Public Use
  Company Number: PHBS2008US01570

PATIENT
  Age: 63 Year
  Sex: Female

DRUGS (3)
  1. METHYLPHENIDATE HCL [Suspect]
  2. BUPROPION HCL [Suspect]
     Dosage: 27 G, ONCE/SINGLE
     Route: 048
  3. CYCLOBENZAPRINE HCL [Suspect]
     Dosage: 200 MG, ONCE/SINGLE

REACTIONS (10)
  - BLOOD PRESSURE INCREASED [None]
  - BRADYCARDIA [None]
  - CARDIAC ARREST [None]
  - CONVULSION [None]
  - ELECTROCARDIOGRAM QRS COMPLEX [None]
  - ELECTROMECHANICAL DISSOCIATION [None]
  - HYPOTENSION [None]
  - INTENTIONAL OVERDOSE [None]
  - SINUS TACHYCARDIA [None]
  - SUICIDE ATTEMPT [None]
